FAERS Safety Report 5234413-5 (Version None)
Quarter: 2007Q1

REPORT INFORMATION
  Report Type: 
  Country: None (occurrence: None)
  Receive Date: 20070209
  Receipt Date: 20070207
  Transmission Date: 20070707
  Serious: Yes (Hospitalization)
  Sender: FDA-Public Use
  Company Number: FR-SP-2005-02402

PATIENT
  Age: 75 Year
  Sex: Male

DRUGS (1)
  1. IMMUCYST [Suspect]
     Indication: BLADDER CANCER
     Route: 043
     Dates: start: 20050923, end: 20050923

REACTIONS (4)
  - BOVINE TUBERCULOSIS [None]
  - HAEMATURIA [None]
  - HEPATITIS [None]
  - PYREXIA [None]
